FAERS Safety Report 12002667 (Version 3)
Quarter: 2016Q4

REPORT INFORMATION
  Report Type: Report from Study
  Country: AU (occurrence: AU)
  Receive Date: 20160204
  Receipt Date: 20161103
  Transmission Date: 20170206
  Serious: Yes (Hospitalization, Other)
  Sender: FDA-Public Use
  Company Number: AU-EISAI MEDICAL RESEARCH-EC-2016-014010

PATIENT
  Age: 66 Year
  Sex: Male
  Weight: 92.3 kg

DRUGS (15)
  1. LOSEC [Concomitant]
     Active Substance: OMEPRAZOLE
     Route: 048
     Dates: start: 2007
  2. PLAVIX [Concomitant]
     Active Substance: CLOPIDOGREL BISULFATE
     Route: 048
     Dates: start: 201507
  3. IMDUR [Concomitant]
     Active Substance: ISOSORBIDE MONONITRATE
     Route: 048
     Dates: start: 201507
  4. NATURE OWN FISH OIL [Concomitant]
     Route: 048
     Dates: start: 201507
  5. ASPIRIN. [Concomitant]
     Active Substance: ASPIRIN
     Route: 048
     Dates: start: 2009
  6. LIPITOR [Concomitant]
     Active Substance: ATORVASTATIN CALCIUM
     Route: 048
     Dates: start: 1989
  7. TERBIRIAFINE [Concomitant]
     Route: 048
     Dates: start: 201509
  8. PANADOL [Concomitant]
     Active Substance: ACETAMINOPHEN
     Route: 048
     Dates: start: 201509
  9. MACU VISION [Concomitant]
     Route: 048
     Dates: start: 2013
  10. LORCASERIN [Suspect]
     Active Substance: LORCASERIN HYDROCHLORIDE
     Indication: WEIGHT CONTROL
     Route: 048
     Dates: start: 20151016, end: 20160201
  11. ARTHRO AID (GLUCOSAMINE) [Concomitant]
     Route: 048
     Dates: start: 2010
  12. TRITACE [Concomitant]
     Active Substance: RAMIPRIL
     Route: 048
     Dates: start: 2010
  13. IKOREL [Concomitant]
     Active Substance: NICORANDIL
     Route: 048
     Dates: start: 201507
  14. NORVASC [Concomitant]
     Active Substance: AMLODIPINE BESYLATE
     Route: 048
     Dates: start: 201507
  15. LEXAPRO [Concomitant]
     Active Substance: ESCITALOPRAM OXALATE
     Route: 048
     Dates: start: 1989

REACTIONS (1)
  - Suicidal ideation [Recovered/Resolved]

NARRATIVE: CASE EVENT DATE: 201510
